FAERS Safety Report 21242630 (Version 4)
Quarter: 2023Q2

REPORT INFORMATION
  Report Type: Report from Study
  Country: CA (occurrence: CA)
  Receive Date: 20220823
  Receipt Date: 20230516
  Transmission Date: 20230722
  Serious: Yes (Other)
  Sender: FDA-Public Use
  Company Number: CA-BAUSCH-BL-2022-016475

PATIENT
  Sex: Female

DRUGS (10)
  1. CONTRAVE [Suspect]
     Active Substance: BUPROPION HYDROCHLORIDE\NALTREXONE HYDROCHLORIDE
     Indication: Weight control
     Dosage: 90/8MG, 1 TAB DAILY
     Route: 048
     Dates: start: 20220530, end: 20220612
  2. CONTRAVE [Suspect]
     Active Substance: BUPROPION HYDROCHLORIDE\NALTREXONE HYDROCHLORIDE
     Dosage: 90/8MG, 1 TAB BID
     Route: 048
     Dates: start: 20220613, end: 20220626
  3. CONTRAVE [Suspect]
     Active Substance: BUPROPION HYDROCHLORIDE\NALTREXONE HYDROCHLORIDE
     Dosage: 90/8MG, 2 TABS AM, 1 TAB PM
     Route: 048
     Dates: start: 20220627, end: 20220710
  4. CONTRAVE [Suspect]
     Active Substance: BUPROPION HYDROCHLORIDE\NALTREXONE HYDROCHLORIDE
     Dosage: 90/8MG, 2 TABS BID (THIRD MONTH)
     Route: 048
     Dates: start: 20220711
  5. CONTRAVE [Suspect]
     Active Substance: BUPROPION HYDROCHLORIDE\NALTREXONE HYDROCHLORIDE
     Dosage: 90/8MG, 1 TAB DAILY
     Route: 048
     Dates: start: 20221006, end: 20221007
  6. CONTRAVE [Suspect]
     Active Substance: BUPROPION HYDROCHLORIDE\NALTREXONE HYDROCHLORIDE
     Dosage: 90/8MG, 1 TAB BID
     Route: 048
     Dates: start: 20221008, end: 20221009
  7. CONTRAVE [Suspect]
     Active Substance: BUPROPION HYDROCHLORIDE\NALTREXONE HYDROCHLORIDE
     Dosage: 90/8MG, 2 TABS AM, 1 TAB PM
     Route: 048
     Dates: start: 20221010, end: 20221011
  8. CONTRAVE [Suspect]
     Active Substance: BUPROPION HYDROCHLORIDE\NALTREXONE HYDROCHLORIDE
     Dosage: 90/8MG, 2 TABS BID
     Route: 048
     Dates: start: 20221012
  9. CONTRAVE [Suspect]
     Active Substance: BUPROPION HYDROCHLORIDE\NALTREXONE HYDROCHLORIDE
     Dosage: 90/8MG, 1 TAB (THIRD ATTEMPT) (1 DOSAGE FORMS,1 IN 1 D)
     Route: 048
     Dates: start: 202304
  10. CONTRAVE [Suspect]
     Active Substance: BUPROPION HYDROCHLORIDE\NALTREXONE HYDROCHLORIDE
     Dosage: 90/8MG, 2 TABS BID
     Route: 048
     Dates: start: 202304

REACTIONS (13)
  - Uterine haemorrhage [Recovered/Resolved]
  - Condition aggravated [Recovered/Resolved]
  - Brain fog [Recovered/Resolved]
  - Weight increased [Unknown]
  - Energy increased [Unknown]
  - Influenza [Recovered/Resolved]
  - Dizziness [Recovered/Resolved]
  - Therapeutic response unexpected [Unknown]
  - Drug titration error [Unknown]
  - Product dose omission issue [Unknown]
  - Intentional product use issue [Unknown]
  - Product dose omission in error [Unknown]
  - Product use issue [Unknown]

NARRATIVE: CASE EVENT DATE: 20220101
